FAERS Safety Report 8701538 (Version 2)
Quarter: 2013Q4

REPORT INFORMATION
  Report Type: Spontaneous
  Country: US (occurrence: US)
  Receive Date: 20120803
  Receipt Date: 20131101
  Transmission Date: 20140711
  Serious: Yes (Other)
  Sender: FDA-Public Use
  Company Number: US-009507513-1207USA011475

PATIENT
  Age: 67 Year
  Sex: Male

DRUGS (4)
  1. ZOCOR [Suspect]
     Route: 048
  2. PLETAAL [Suspect]
     Dosage: 100 MG, BID
     Route: 048
  3. BLOPRESS [Suspect]
     Route: 048
  4. AMLODIN (AMLODIPINE BESYLATE) [Suspect]

REACTIONS (2)
  - Rhabdomyolysis [Unknown]
  - Blood creatine phosphokinase increased [Unknown]
